FAERS Safety Report 24226141 (Version 1)
Quarter: 2024Q3

REPORT INFORMATION
  Report Type: Report from Study
  Country: ES (occurrence: None)
  Receive Date: 20240820
  Receipt Date: 20240820
  Transmission Date: 20241017
  Serious: Yes (Hospitalization, Other)
  Sender: ASTRAZENECA
  Company Number: 2022A304906

PATIENT
  Age: 60 Year
  Sex: Male

DRUGS (1)
  1. FASENRA [Suspect]
     Active Substance: BENRALIZUMAB
     Indication: Asthma
     Dosage: UNKNOWN DOSE EVERY EIGHT WEEKS
     Route: 058

REACTIONS (1)
  - Cerebrovascular accident [Recovering/Resolving]

NARRATIVE: CASE EVENT DATE: 20220731
